FAERS Safety Report 4553260-0 (Version None)
Quarter: 2005Q1

REPORT INFORMATION
  Report Type: 
  Country: None (occurrence: None)
  Receive Date: 20050114
  Receipt Date: 20050105
  Transmission Date: 20050727
  Serious: Yes (Other)
  Sender: FDA-Public Use
  Company Number: ZA-BRISTOL-MYERS SQUIBB COMPANY-12813937

PATIENT
  Age: 37 Year
  Sex: Female

DRUGS (4)
  1. IXABEPILONE [Concomitant]
     Indication: BREAST CANCER
     Dosage: THERAPY INITIATED ON 23-SEP-04.
     Route: 042
     Dates: start: 20041104, end: 20041104
  2. CAPECITABINE [Suspect]
     Indication: BREAST CANCER
     Dosage: THERAPY INITIATED ON 23-SEP-2004.
     Route: 048
     Dates: start: 20041104, end: 20041118
  3. PHENERGAN [Concomitant]
     Dosage: PRE-MEDICATION ADMINISTERED DAY 1 OF EACH CYCLE.
     Route: 042
     Dates: start: 20040923
  4. CIMETIDINE [Concomitant]
     Dosage: PRE-MEDICATION ADMINISTERED DAY 1 OF EACH CYCLE.
     Route: 042
     Dates: start: 20040923

REACTIONS (1)
  - TUMOUR ULCERATION [None]
